FAERS Safety Report 7545655-8 (Version None)
Quarter: 2011Q2

REPORT INFORMATION
  Report Type: 
  Country: None (occurrence: None)
  Receive Date: 20110614
  Receipt Date: 20110609
  Transmission Date: 20111010
  Serious: Yes (Death, Life-Threatening, Hospitalization, Other)
  Sender: FDA-Public Use
  Company Number: JP-ABBOTT-10P-087-0693557-00

PATIENT
  Sex: Female
  Weight: 40.5 kg

DRUGS (9)
  1. LAFUTIDINE [Concomitant]
     Indication: PRODUCT USED FOR UNKNOWN INDICATION
     Route: 048
     Dates: start: 20100412
  2. HUMIRA [Suspect]
     Indication: RHEUMATOID ARTHRITIS
     Route: 058
     Dates: start: 20090427, end: 20100118
  3. HUMIRA [Suspect]
     Route: 058
     Dates: start: 20100308, end: 20101002
  4. LOXOPROFEN SODIUM HYDRATE [Concomitant]
     Indication: RHEUMATOID ARTHRITIS
     Dates: end: 20101029
  5. ISONIAZID [Concomitant]
     Indication: ANTIBIOTIC PROPHYLAXIS
     Dates: start: 20090622
  6. URSODIOL [Concomitant]
     Indication: PRODUCT USED FOR UNKNOWN INDICATION
  7. SENNOSIDE [Concomitant]
     Indication: PRODUCT USED FOR UNKNOWN INDICATION
  8. PREDNISOLONE [Concomitant]
     Indication: RHEUMATOID ARTHRITIS
     Route: 048
     Dates: start: 20091026, end: 20100928
  9. PREDNISOLONE [Concomitant]
     Route: 048
     Dates: start: 20100929

REACTIONS (16)
  - PYREXIA [None]
  - ABDOMINAL PAIN [None]
  - INFLAMMATORY MARKER INCREASED [None]
  - ABSCESS [None]
  - BACK PAIN [None]
  - AORTIC RUPTURE [None]
  - ANAEMIA [None]
  - HAEMATEMESIS [None]
  - MELAENA [None]
  - VASCULAR GRAFT COMPLICATION [None]
  - HAEMATOCHEZIA [None]
  - AORTO-DUODENAL FISTULA [None]
  - PERITONEAL HAEMATOMA [None]
  - DEVICE RELATED INFECTION [None]
  - GRAM STAIN POSITIVE [None]
  - MALAISE [None]
